FAERS Safety Report 14481278 (Version 4)
Quarter: 2018Q1

REPORT INFORMATION
  Report Type: Spontaneous
  Country: DE (occurrence: DE)
  Receive Date: 20180202
  Receipt Date: 20180219
  Transmission Date: 20180509
  Serious: Yes (Hospitalization, Other)
  Sender: FDA-Public Use
  Company Number: DE-UCBSA-2018003190

PATIENT
  Age: 41 Year
  Sex: Female
  Weight: 87 kg

DRUGS (5)
  1. CETIRIZINE [Concomitant]
     Active Substance: CETIRIZINE HYDROCHLORIDE
     Indication: PRODUCT USED FOR UNKNOWN INDICATION
  2. PANTOZOL [Concomitant]
     Active Substance: PANTOPRAZOLE SODIUM
     Indication: PRODUCT USED FOR UNKNOWN INDICATION
  3. CIMZIA [Suspect]
     Active Substance: CERTOLIZUMAB PEGOL
     Indication: SPONDYLITIS
  4. CIMZIA [Suspect]
     Active Substance: CERTOLIZUMAB PEGOL
     Indication: PSORIATIC ARTHROPATHY
     Dosage: UNK UNK, EV 2 WEEKS(QOW)
     Route: 058
     Dates: start: 201708, end: 201711
  5. LEVOFLOXACINE [Suspect]
     Active Substance: LEVOFLOXACIN
     Indication: CYSTITIS
     Dosage: UNK
     Dates: start: 20171219, end: 20171223

REACTIONS (4)
  - Drug-induced liver injury [Recovering/Resolving]
  - Cystitis [Unknown]
  - Gastritis [Recovering/Resolving]
  - Jaundice [Unknown]

NARRATIVE: CASE EVENT DATE: 20171229
